FAERS Safety Report 11488752 (Version 1)
Quarter: 2015Q3

REPORT INFORMATION
  Report Type: Spontaneous
  Country: US (occurrence: US)
  Receive Date: 20150910
  Receipt Date: 20150910
  Transmission Date: 20151125
  Serious: No
  Sender: FDA-Public Use
  Company Number: US-ROCHE-1475432

PATIENT
  Sex: Female
  Weight: 61.29 kg

DRUGS (3)
  1. PEGASYS [Suspect]
     Active Substance: PEGINTERFERON ALFA-2A
     Indication: PRODUCT USED FOR UNKNOWN INDICATION
     Route: 065
  2. SOVALDI [Suspect]
     Active Substance: SOFOSBUVIR
     Indication: PRODUCT USED FOR UNKNOWN INDICATION
     Route: 065
  3. RIBAVIRIN. [Suspect]
     Active Substance: RIBAVIRIN
     Indication: PRODUCT USED FOR UNKNOWN INDICATION
     Dosage: BRAND NAME: RIBASPHERE RIBAPAK
     Route: 065

REACTIONS (7)
  - Chest pain [Unknown]
  - Dyspnoea [Unknown]
  - Hypotension [Unknown]
  - Palpitations [Unknown]
  - Anaemia [Unknown]
  - Dizziness [Unknown]
  - Asthenia [Unknown]
